FAERS Safety Report 13897337 (Version 1)
Quarter: 2017Q3

REPORT INFORMATION
  Report Type: Report from Study
  Country: MX (occurrence: MX)
  Receive Date: 20170823
  Receipt Date: 20170823
  Transmission Date: 20171127
  Serious: Yes (Death)
  Sender: FDA-Public Use
  Company Number: MX-CELGENEUS-MEX-20170804062

PATIENT
  Age: 67 Year
  Sex: Female

DRUGS (2)
  1. VIDAZA [Suspect]
     Active Substance: AZACITIDINE
     Dosage: 125 MILLIGRAM
     Route: 058
     Dates: start: 20170215, end: 20170221
  2. VIDAZA [Suspect]
     Active Substance: AZACITIDINE
     Indication: ACUTE MYELOID LEUKAEMIA
     Dosage: 125 MILLIGRAM
     Route: 058
     Dates: start: 20160526, end: 20170216

REACTIONS (1)
  - Death [Fatal]

NARRATIVE: CASE EVENT DATE: 20170722
